FAERS Safety Report 5540826-4 (Version None)
Quarter: 2007Q4

REPORT INFORMATION
  Report Type: 
  Country: None (occurrence: None)
  Receive Date: 20071129
  Receipt Date: 20070531
  Transmission Date: 20080405
  Serious: Yes (Other)
  Sender: FDA-Public Use
  Company Number: US200703003997

PATIENT
  Sex: Female
  Weight: 77.1 kg

DRUGS (4)
  1. ZYPREXA [Suspect]
     Indication: MAJOR DEPRESSION
     Dosage: 17.5 MG,; 20 MG,
     Dates: start: 20030601
  2. CLONAZEPAM [Concomitant]
  3. WELLBUTRIN [Concomitant]
  4. CELEXA [Concomitant]

REACTIONS (5)
  - DIABETES MELLITUS [None]
  - DIABETIC COMA [None]
  - DIABETIC KETOACIDOSIS [None]
  - HYPERGLYCAEMIA [None]
  - PANCREATITIS [None]
